FAERS Safety Report 16769666 (Version 1)
Quarter: 2019Q3

REPORT INFORMATION
  Report Type: Spontaneous
  Country: CA (occurrence: CA)
  Receive Date: 20190903
  Receipt Date: 20190903
  Transmission Date: 20191005
  Serious: Yes (Other)
  Sender: FDA-Public Use
  Company Number: PHHY2019CA202129

PATIENT
  Sex: Female

DRUGS (3)
  1. CABERGOLINE. [Suspect]
     Active Substance: CABERGOLINE
     Indication: PRODUCT USED FOR UNKNOWN INDICATION
     Dosage: 1 MG, BIW
     Route: 065
  2. PASIREOTIDE LAR [Suspect]
     Active Substance: PASIREOTIDE
     Indication: RHEUMATOID ARTHRITIS
     Dosage: 60 MG, QMO (4/4 WEEKS)
     Route: 030
  3. SANDOSTATIN LAR DEPOT [Suspect]
     Active Substance: OCTREOTIDE ACETATE
     Indication: PRODUCT USED FOR UNKNOWN INDICATION
     Dosage: 30 MG, QMO
     Route: 030

REACTIONS (3)
  - Type 2 diabetes mellitus [Unknown]
  - Product use in unapproved indication [Unknown]
  - Condition aggravated [Unknown]
